FAERS Safety Report 23108004 (Version 1)
Quarter: 2023Q4

REPORT INFORMATION
  Report Type: Report from Study
  Country: AT (occurrence: AT)
  Receive Date: 20231026
  Receipt Date: 20231026
  Transmission Date: 20240110
  Serious: Yes (Other)
  Sender: FDA-Public Use
  Company Number: AT-ABBVIE-5320808

PATIENT
  Sex: Female

DRUGS (2)
  1. HUMIRA [Suspect]
     Active Substance: ADALIMUMAB
     Indication: Crohn^s disease
     Route: 058
     Dates: start: 2017, end: 202305
  2. HUMIRA [Suspect]
     Active Substance: ADALIMUMAB
     Route: 058
     Dates: start: 202305

REACTIONS (5)
  - Jaw fistula [Recovered/Resolved]
  - Tendonitis [Not Recovered/Not Resolved]
  - Toothache [Recovered/Resolved]
  - Tendon injury [Not Recovered/Not Resolved]
  - Cluster headache [Recovering/Resolving]

NARRATIVE: CASE EVENT DATE: 20230101
